FAERS Safety Report 7317960-1 (Version None)
Quarter: 2011Q1

REPORT INFORMATION
  Report Type: 
  Country: None (occurrence: None)
  Receive Date: 20110226
  Receipt Date: 20110212
  Transmission Date: 20110831
  Serious: Yes (Hospitalization, Other)
  Sender: FDA-Public Use
  Company Number: IT-ELI_LILLY_AND_COMPANY-IT201102003446

PATIENT
  Age: 40 Year
  Sex: Female

DRUGS (1)
  1. ZYPREXA [Suspect]
     Dosage: UNK, UNK
     Dates: start: 20110101

REACTIONS (11)
  - DIZZINESS [None]
  - PERSECUTORY DELUSION [None]
  - SOMNOLENCE [None]
  - ASTHENIA [None]
  - PREMATURE LABOUR [None]
  - HYPERHIDROSIS [None]
  - FATIGUE [None]
  - ABORTION THREATENED [None]
  - CONFUSIONAL STATE [None]
  - TREMOR [None]
  - DRUG EXPOSURE DURING PREGNANCY [None]
